FAERS Safety Report 21296585 (Version 1)
Quarter: 2022Q3

REPORT INFORMATION
  Report Type: Spontaneous
  Country: US (occurrence: US)
  Receive Date: 20220906
  Receipt Date: 20220906
  Transmission Date: 20221026
  Serious: Yes (Other)
  Sender: FDA-Public Use
  Company Number: US-SA-SAC20220902000790

PATIENT
  Sex: Male

DRUGS (2)
  1. ZANTAC [Suspect]
     Active Substance: RANITIDINE HYDROCHLORIDE
     Dosage: PRESCRIPTION ZANTAC FROM APPROXIMATELY 1988 TO 2012; OVER THE COUNTER ZANTAC FROM APPROXIMATELY 1988
     Route: 048
     Dates: start: 1988, end: 2012
  2. RANITIDINE HYDROCHLORIDE [Suspect]
     Active Substance: RANITIDINE HYDROCHLORIDE
     Dosage: OVER THE COUNTER RANITIDINE FROM APPROXIMATELY 1988 TO 2012; PRESCRIPTION RANITIDINE FROM APPROXIMAT
     Route: 048
     Dates: start: 1988, end: 2012

REACTIONS (1)
  - Prostate cancer [Unknown]
